FAERS Safety Report 24991967 (Version 1)
Quarter: 2025Q1

REPORT INFORMATION
  Report Type: Other
  Country: FR (occurrence: FR)
  Receive Date: 20250220
  Receipt Date: 20250220
  Transmission Date: 20250408
  Serious: Yes (Other)
  Sender: PL DEVELOPMENTS
  Company Number: FR-P+L Developments of Newyork Corporation-2171493

PATIENT
  Age: 68 Year
  Sex: Male

DRUGS (4)
  1. ESOMEPRAZOLE MAGNESIUM [Suspect]
     Active Substance: ESOMEPRAZOLE MAGNESIUM
     Indication: Aspergillus infection
  2. TACROLIMUS [Suspect]
     Active Substance: TACROLIMUS
  3. ISAVUCONAZOLE [Suspect]
     Active Substance: ISAVUCONAZOLE
  4. POSACONAZOLE [Suspect]
     Active Substance: POSACONAZOLE

REACTIONS (2)
  - Drug interaction [Unknown]
  - Toxicity to various agents [Unknown]
